FAERS Safety Report 9128625 (Version 1)
Quarter: 2013Q1

REPORT INFORMATION
  Report Type: Spontaneous
  Country: DE (occurrence: DE)
  Receive Date: 20130228
  Receipt Date: 20130228
  Transmission Date: 20140127
  Serious: Yes (Death)
  Sender: FDA-Public Use
  Company Number: GXKR2013DE001023

PATIENT
  Age: 65 Year
  Sex: Male
  Weight: 71 kg

DRUGS (5)
  1. DEXAMETHASONE [Suspect]
     Indication: SUPPORTIVE CARE
     Dosage: 8 MG, UNK
     Route: 042
     Dates: start: 20120712
  2. CISPLATIN [Suspect]
     Indication: PALLIATIVE CARE
     Dosage: 136 MG, UNK
     Route: 042
     Dates: start: 20120712
  3. PEMETREXED DISODIUM [Suspect]
     Indication: PALLIATIVE CARE
     Dosage: 905 MG, UNK
     Route: 042
     Dates: start: 20120712
  4. GRANISETRON [Concomitant]
     Indication: ANTIEMETIC SUPPORTIVE CARE
     Dosage: 3 MG, UNK
     Route: 042
  5. EMEND [Concomitant]
     Indication: ANTIEMETIC SUPPORTIVE CARE
     Dosage: 125 MG, UNK
     Route: 042
     Dates: start: 20120712, end: 20120714

REACTIONS (2)
  - Multi-organ failure [Fatal]
  - Sepsis [Fatal]
